FAERS Safety Report 9045889 (Version 1)
Quarter: 2013Q1

REPORT INFORMATION
  Report Type: Report from Study
  Country: US (occurrence: US)
  Receive Date: 20130201
  Receipt Date: 20130201
  Transmission Date: 20140127
  Serious: No
  Sender: FDA-Public Use
  Company Number: US-ABBOTT-12P-163-1022184-00

PATIENT
  Sex: Female
  Weight: 83.99 kg

DRUGS (7)
  1. HUMIRA [Suspect]
     Indication: SPONDYLOARTHROPATHY
  2. SULFASALAZINE [Concomitant]
     Indication: PRODUCT USED FOR UNKNOWN INDICATION
  3. PAXIL [Concomitant]
     Indication: ANXIETY
  4. WELLBUTRIN [Concomitant]
     Indication: DEPRESSION
  5. LISINOPRIL [Concomitant]
     Indication: HYPERTENSION
  6. PROTONIX [Concomitant]
     Indication: GASTROOESOPHAGEAL REFLUX DISEASE
  7. ATENOLOL [Concomitant]
     Indication: HYPERTENSION

REACTIONS (1)
  - Off label use [Not Recovered/Not Resolved]
